FAERS Safety Report 19191070 (Version 2)
Quarter: 2021Q2

REPORT INFORMATION
  Report Type: Spontaneous
  Country: US (occurrence: US)
  Receive Date: 20210428
  Receipt Date: 20210517
  Transmission Date: 20210717
  Serious: Yes (Life-Threatening, Hospitalization, Other)
  Sender: FDA-Public Use
  Company Number: US-AMNEAL PHARMACEUTICALS-2021-AMRX-01326

PATIENT
  Age: 42 Year
  Sex: Male

DRUGS (18)
  1. ALBENZA [Suspect]
     Active Substance: ALBENDAZOLE
     Dosage: 0.1 MILLIGRAM, UNK
     Route: 048
  2. ALBENZA [Suspect]
     Active Substance: ALBENDAZOLE
     Dosage: 400 MILLIGRAM, TID
     Route: 048
     Dates: start: 20171020
  3. ALBENZA [Suspect]
     Active Substance: ALBENDAZOLE
     Dosage: 0.003 MILLIGRAM, UNK
     Route: 048
  4. ALBENZA [Suspect]
     Active Substance: ALBENDAZOLE
     Dosage: 30 MILLIGRAM, UNK
     Route: 048
  5. ALBENZA [Suspect]
     Active Substance: ALBENDAZOLE
     Dosage: 3 MILLIGRAM, UNK
     Route: 048
  6. ALBENZA [Suspect]
     Active Substance: ALBENDAZOLE
     Indication: NEUROCYSTICERCOSIS
     Dosage: 400 MILLIGRAM, BID
     Route: 065
  7. ALBENZA [Suspect]
     Active Substance: ALBENDAZOLE
     Dosage: 0.03 MILLIGRAM, UNK
     Route: 048
  8. ALBENZA [Suspect]
     Active Substance: ALBENDAZOLE
     Dosage: 0.3 MILLIGRAM, UNK
     Route: 048
  9. ALBENZA [Suspect]
     Active Substance: ALBENDAZOLE
     Dosage: 10 MILLIGRAM, UNK
     Route: 048
  10. DEXAMETHASONE. [Concomitant]
     Active Substance: DEXAMETHASONE
     Indication: PRODUCT USED FOR UNKNOWN INDICATION
     Dosage: 4 MILLIGRAM, 3X/DAY
     Route: 042
  11. ALBENZA [Suspect]
     Active Substance: ALBENDAZOLE
     Dosage: 200 MILLIGRAM, BID
     Route: 048
  12. ALBENZA [Suspect]
     Active Substance: ALBENDAZOLE
     Dosage: 1 MILLIGRAM, UNK
     Route: 048
  13. ALBENZA [Suspect]
     Active Substance: ALBENDAZOLE
     Dosage: 300 MILLIGRAM, UNK
     Route: 048
  14. DEXAMETHASONE. [Concomitant]
     Active Substance: DEXAMETHASONE
     Dosage: 8 MILLIGRAM, 2X/DAY
     Route: 048
  15. ALBENZA [Suspect]
     Active Substance: ALBENDAZOLE
     Dosage: 0.001 MILLIGRAM, UNK
     Route: 048
  16. ALBENZA [Suspect]
     Active Substance: ALBENDAZOLE
     Dosage: 0.01 MILLIGRAM, UNK
     Route: 048
  17. ALBENZA [Suspect]
     Active Substance: ALBENDAZOLE
     Dosage: 100 MILLIGRAM, UNK
     Route: 048
  18. PRAZIQUANTEL. [Concomitant]
     Active Substance: PRAZIQUANTEL
     Indication: PRODUCT USED FOR UNKNOWN INDICATION
     Dosage: 1500 MILLIGRAM, TID
     Route: 065

REACTIONS (17)
  - Disease progression [Recovered/Resolved]
  - Nervous system disorder [Recovered/Resolved]
  - Mental status changes [Recovered/Resolved]
  - Headache [Recovered/Resolved]
  - Seizure [Recovered/Resolved]
  - Drug intolerance [Unknown]
  - Neurocysticercosis [Recovered/Resolved]
  - Confusional state [Recovered/Resolved]
  - Paraesthesia [Recovered/Resolved]
  - Hydrocephalus [Recovered/Resolved]
  - Dizziness [Recovered/Resolved]
  - Drug hypersensitivity [Recovered/Resolved]
  - Cerebral cyst [Recovered/Resolved]
  - Therapy cessation [Unknown]
  - Lip pruritus [Recovered/Resolved]
  - Urticaria [Recovered/Resolved]
  - Cerebral mass effect [Recovered/Resolved]
